FAERS Safety Report 9123136 (Version 1)
Quarter: 2013Q1

REPORT INFORMATION
  Report Type: Spontaneous
  Country: RO (occurrence: None)
  Receive Date: 20130128
  Receipt Date: 20130128
  Transmission Date: 20140127
  Serious: Yes (Life-Threatening)
  Sender: FDA-Public Use
  Company Number: 2013-01081

PATIENT
  Age: 67 Year
  Sex: Male

DRUGS (3)
  1. ALBUTEROL SULFATE [Suspect]
  2. FLUTICASONE PROPIONATE W/SALMETEROL (FLUTICASONE PROPIONATE, SALMETEROL) [Concomitant]
  3. TIOTROPIUM BROMIDE (TIOTROPIUM BROMIDE) [Concomitant]

REACTIONS (7)
  - Status asthmaticus [None]
  - Bronchospasm paradoxical [None]
  - Anxiety [None]
  - Dyspnoea [None]
  - Depressed level of consciousness [None]
  - Asterixis [None]
  - Blood pressure increased [None]
